FAERS Safety Report 15409566 (Version 6)
Quarter: 2019Q2

REPORT INFORMATION
  Report Type: Report from Study
  Country: US (occurrence: US)
  Receive Date: 20180920
  Receipt Date: 20190523
  Transmission Date: 20190711
  Serious: Yes (Hospitalization, Other)
  Sender: FDA-Public Use
  Company Number: US-ACTELION-A-NJ2018-178921

PATIENT
  Age: 84 Year
  Sex: Female

DRUGS (26)
  1. LEXAPRO [Concomitant]
     Active Substance: ESCITALOPRAM OXALATE
  2. PROBIOTIC [Concomitant]
     Active Substance: PROBIOTICS NOS
  3. ORENITRAM [Concomitant]
     Active Substance: TREPROSTINIL
  4. FERROUS SULFATE. [Concomitant]
     Active Substance: FERROUS SULFATE
  5. MONTELUKAST [Concomitant]
     Active Substance: MONTELUKAST SODIUM
  6. ATORVASTATIN [Concomitant]
     Active Substance: ATORVASTATIN
  7. LIDODERM [Concomitant]
     Active Substance: LIDOCAINE
  8. SPIRIVA [Concomitant]
     Active Substance: TIOTROPIUM BROMIDE MONOHYDRATE
  9. OMEPRAZOLE. [Concomitant]
     Active Substance: OMEPRAZOLE
  10. VITAMIN D [Concomitant]
     Active Substance: VITAMIN D NOS
  11. AMLODIPINE [Concomitant]
     Active Substance: AMLODIPINE BESYLATE
  12. KCL [Concomitant]
     Active Substance: POTASSIUM CHLORIDE
  13. VENTOLIN HFA [Concomitant]
     Active Substance: ALBUTEROL SULFATE
  14. FERROUS SULFATE. [Concomitant]
     Active Substance: FERROUS SULFATE
  15. ADVAIR HFA [Concomitant]
     Active Substance: FLUTICASONE PROPIONATE\SALMETEROL XINAFOATE
     Dosage: UNK, BID
  16. ASA [Concomitant]
     Active Substance: ASPIRIN
  17. DIFLUCAN [Concomitant]
     Active Substance: FLUCONAZOLE
  18. FUROSEMIDE. [Concomitant]
     Active Substance: FUROSEMIDE
  19. SINGULAIR [Concomitant]
     Active Substance: MONTELUKAST SODIUM
  20. SILDENAFIL. [Suspect]
     Active Substance: SILDENAFIL
     Indication: PULMONARY ARTERIAL HYPERTENSION
     Dosage: 20 MG, TID
     Route: 048
     Dates: start: 20171221
  21. LASIX [Concomitant]
     Active Substance: FUROSEMIDE
  22. ASTELIN [Concomitant]
     Active Substance: AZELASTINE HYDROCHLORIDE
  23. K-DUR [Concomitant]
     Active Substance: POTASSIUM CHLORIDE
  24. OPSUMIT [Suspect]
     Active Substance: MACITENTAN
     Indication: PULMONARY ARTERIAL HYPERTENSION
     Dosage: 10 MG, QD
     Route: 048
     Dates: start: 20180127
  25. COLCHICINE. [Concomitant]
     Active Substance: COLCHICINE
  26. VITAMIN D3 [Concomitant]
     Active Substance: CHOLECALCIFEROL

REACTIONS (20)
  - Haematocrit decreased [Recovered/Resolved]
  - Dyspnoea [Recovering/Resolving]
  - Inflammatory bowel disease [Recovering/Resolving]
  - Product dose omission [Unknown]
  - Bronchitis [Recovering/Resolving]
  - Clostridium difficile infection [Recovering/Resolving]
  - Dyspnoea exertional [Recovering/Resolving]
  - Back pain [Recovering/Resolving]
  - Anaemia [Recovered/Resolved]
  - Muscle fatigue [Unknown]
  - Dizziness [Unknown]
  - Transfusion [Recovering/Resolving]
  - Gastric disorder [Unknown]
  - Epistaxis [Recovering/Resolving]
  - Faeces discoloured [Recovering/Resolving]
  - Haemoglobin decreased [Recovered/Resolved]
  - Gastrointestinal haemorrhage [Recovered/Resolved]
  - Fatigue [Unknown]
  - Diagnostic procedure [Unknown]
  - Ulcer [Unknown]

NARRATIVE: CASE EVENT DATE: 201809
